FAERS Safety Report 5518630-2 (Version None)
Quarter: 2007Q4

REPORT INFORMATION
  Report Type: 
  Country: None (occurrence: None)
  Receive Date: 20071115
  Receipt Date: 20071109
  Transmission Date: 20080405
  Serious: Yes (Other)
  Sender: FDA-Public Use
  Company Number: US-ASTRAZENECA-2007UW16990

PATIENT
  Age: 55 Year
  Sex: Female
  Weight: 54.1 kg

DRUGS (3)
  1. SEROQUEL [Suspect]
     Indication: SLEEP DISORDER
     Route: 048
     Dates: start: 20020101, end: 20060101
  2. CLOZARIL [Concomitant]
  3. CYMBALTA [Concomitant]

REACTIONS (5)
  - BRADYPNOEA [None]
  - DIABETES MELLITUS [None]
  - DIABETIC NEUROPATHY [None]
  - LOSS OF CONSCIOUSNESS [None]
  - TRIGEMINAL NEURALGIA [None]
